FAERS Safety Report 17533699 (Version 1)
Quarter: 2020Q1

REPORT INFORMATION
  Report Type: Spontaneous
  Country: PL (occurrence: PL)
  Receive Date: 20200312
  Receipt Date: 20200312
  Transmission Date: 20200409
  Serious: Yes (Hospitalization, Other)
  Sender: FDA-Public Use
  Company Number: PL-PFIZER INC-2020105446

PATIENT

DRUGS (1)
  1. CYTARABINE. [Suspect]
     Active Substance: CYTARABINE
     Dosage: UNK

REACTIONS (5)
  - Drug ineffective [Unknown]
  - Pneumonia [Unknown]
  - Diarrhoea [Unknown]
  - Pulmonary oedema [Unknown]
  - Cardiac failure acute [Unknown]
